FAERS Safety Report 12638753 (Version 1)
Quarter: 2016Q3

REPORT INFORMATION
  Report Type: Spontaneous
  Country: US (occurrence: US)
  Receive Date: 20160809
  Receipt Date: 20160809
  Transmission Date: 20161109
  Serious: No
  Sender: FDA-Public Use
  Company Number: US-MEDA-2016070115

PATIENT
  Age: 21 Year
  Sex: Male
  Weight: 91 kg

DRUGS (2)
  1. NEXIUM [Concomitant]
     Active Substance: ESOMEPRAZOLE MAGNESIUM
     Indication: DYSPEPSIA
  2. DYMISTA [Suspect]
     Active Substance: AZELASTINE HYDROCHLORIDE\FLUTICASONE PROPIONATE
     Indication: RHINITIS ALLERGIC
     Dates: start: 201607

REACTIONS (3)
  - Drug dose omission [Unknown]
  - Fatigue [Unknown]
  - Heat stroke [Unknown]

NARRATIVE: CASE EVENT DATE: 20160726
